FAERS Safety Report 8912785 (Version 2)
Quarter: 2012Q4

REPORT INFORMATION
  Report Type: Report from Study
  Country: DE (occurrence: DE)
  Receive Date: 20121116
  Receipt Date: 20121205
  Transmission Date: 20130627
  Serious: Yes (Hospitalization)
  Sender: FDA-Public Use
  Company Number: DE-ROCHE-1155439

PATIENT
  Age: 65 Year
  Sex: Female
  Weight: 53 kg

DRUGS (4)
  1. BEVACIZUMAB [Suspect]
     Indication: OVARIAN CANCER
     Dosage: last dose prior to event 13/Nov/2012
     Route: 042
     Dates: start: 20121002
  2. PACLITAXEL [Suspect]
     Indication: OVARIAN CANCER
     Dosage: last dose prior to event 13/Nov/2012
     Route: 042
     Dates: start: 20120910
  3. CARBOPLATIN [Suspect]
     Indication: OVARIAN CANCER
     Dosage: last dose prior to event 13/Nov/2012
     Route: 042
     Dates: start: 20120910
  4. BISOPROLOL [Concomitant]
     Indication: HYPERTENSION
     Dosage: last dose prior to event 02/Nov/2012
     Route: 048
     Dates: start: 20121012

REACTIONS (5)
  - Pyrexia [Recovered/Resolved]
  - Urinary tract infection [Recovered/Resolved]
  - Tachycardia [Recovered/Resolved]
  - Leukopenia [Unknown]
  - Deep vein thrombosis [Not Recovered/Not Resolved]
